FAERS Safety Report 6743792-9 (Version None)
Quarter: 2010Q2

REPORT INFORMATION
  Report Type: 
  Country: None (occurrence: None)
  Receive Date: 20100527
  Receipt Date: 20100525
  Transmission Date: 20101027
  Serious: Yes (Other)
  Sender: FDA-Public Use
  Company Number: US-PURDUE-USA-2010-0044144

PATIENT
  Age: 74 Year
  Sex: Female

DRUGS (1)
  1. RYZOLT [Suspect]
     Indication: PAIN
     Dosage: 200 MG, DAILY
     Dates: start: 20100522

REACTIONS (1)
  - BLOOD GLUCOSE INCREASED [None]
